FAERS Safety Report 10257347 (Version 1)
Quarter: 2014Q2

REPORT INFORMATION
  Report Type: Spontaneous
  Country: US (occurrence: US)
  Receive Date: 20140625
  Receipt Date: 20140625
  Transmission Date: 20141212
  Serious: Yes (Other)
  Sender: FDA-Public Use
  Company Number: US-ROCHE-1424327

PATIENT
  Sex: Female

DRUGS (2)
  1. XOLAIR [Suspect]
     Indication: CHRONIC SPONTANEOUS URTICARIA
     Dosage: SOLUTION IN SYRINGE
     Route: 058
  2. XOLAIR [Suspect]
     Route: 065
     Dates: start: 20140523

REACTIONS (1)
  - Anaphylactic reaction [Recovered/Resolved]
